FAERS Safety Report 8318927-7 (Version None)
Quarter: 2012Q2

REPORT INFORMATION
  Report Type: 
  Country: None (occurrence: None)
  Receive Date: 20120427
  Receipt Date: 20120418
  Transmission Date: 20120825
  Serious: Yes (Other)
  Sender: FDA-Public Use
  Company Number: US-JNJFOC-20120408595

PATIENT
  Sex: Female
  Weight: 44.91 kg

DRUGS (8)
  1. REMICADE [Suspect]
     Route: 042
     Dates: start: 20120417
  2. LUVOX [Concomitant]
     Indication: DEPRESSION
     Route: 065
  3. PROLIA [Concomitant]
     Indication: OSTEOPOROSIS
     Route: 065
  4. FOLIC ACID [Concomitant]
     Indication: ALOPECIA
     Route: 065
  5. CRESTOR [Concomitant]
     Indication: BLOOD CHOLESTEROL
     Route: 065
  6. AGGRENOX [Concomitant]
     Indication: CEREBROVASCULAR ACCIDENT
     Route: 065
  7. METHOTREXATE [Concomitant]
     Indication: RHEUMATOID ARTHRITIS
     Route: 048
  8. REMICADE [Suspect]
     Indication: RHEUMATOID ARTHRITIS
     Route: 042
     Dates: start: 20120402

REACTIONS (2)
  - SJOGREN'S SYNDROME [None]
  - WEIGHT DECREASED [None]
